FAERS Safety Report 11487290 (Version 2)
Quarter: 2015Q3

REPORT INFORMATION
  Report Type: Spontaneous
  Country: US (occurrence: US)
  Receive Date: 20150910
  Receipt Date: 20150910
  Transmission Date: 20151125
  Serious: No
  Sender: FDA-Public Use
  Company Number: US-PFIZER INC-2015301588

PATIENT
  Age: 44 Year
  Sex: Male
  Weight: 66 kg

DRUGS (7)
  1. DEXAMETHASONE. [Concomitant]
     Active Substance: DEXAMETHASONE
     Indication: CLUSTER HEADACHE
  2. NORCO [Concomitant]
     Active Substance: ACETAMINOPHEN\HYDROCODONE BITARTRATE
     Indication: PAIN
  3. VIMPAT [Concomitant]
     Active Substance: LACOSAMIDE
     Indication: SEIZURE
  4. DILAUDID [Concomitant]
     Active Substance: HYDROMORPHONE HYDROCHLORIDE
     Indication: PAIN
  5. IBRANCE [Suspect]
     Active Substance: PALBOCICLIB
     Indication: ANAPLASTIC MENINGIOMA
     Dosage: 125 MG, CYCLIC (ONCE DAILY BY MOUTH FOR 21 DAYS AND THEN OFF)
     Route: 048
     Dates: start: 201504, end: 201506
  6. ZOLOFT [Concomitant]
     Active Substance: SERTRALINE HYDROCHLORIDE
     Indication: DEPRESSION
  7. OXYCONTIN [Concomitant]
     Active Substance: OXYCODONE HYDROCHLORIDE
     Indication: PAIN

REACTIONS (3)
  - Product use issue [Unknown]
  - Disease progression [Not Recovered/Not Resolved]
  - Anaplastic meningioma [Not Recovered/Not Resolved]

NARRATIVE: CASE EVENT DATE: 201506
